FAERS Safety Report 5679310-6 (Version None)
Quarter: 2008Q1

REPORT INFORMATION
  Report Type: 
  Country: None (occurrence: None)
  Receive Date: 20080325
  Receipt Date: 20080314
  Transmission Date: 20080703
  Serious: No
  Sender: FDA-Public Use
  Company Number: FR-BAXTER-2008BH001318

PATIENT
  Age: 59 Year
  Sex: Male
  Weight: 69 kg

DRUGS (6)
  1. SEVOFLURANE [Suspect]
     Indication: GLAUCOMA SURGERY
     Dosage: DOSE UNIT:UNKNOWN
     Route: 055
     Dates: start: 20080212
  2. ATROPIN [Concomitant]
     Route: 042
  3. MIDAZOLAM HCL [Concomitant]
     Route: 042
  4. ALFENTANIL [Concomitant]
     Route: 042
  5. PROPOFOL [Concomitant]
     Route: 042
  6. ACETAMINOPHEN [Concomitant]
     Route: 042

REACTIONS (3)
  - AGITATION [None]
  - CATATONIA [None]
  - PANIC REACTION [None]
